FAERS Safety Report 19594892 (Version 1)
Quarter: 2021Q3

REPORT INFORMATION
  Report Type: Spontaneous
  Country: US (occurrence: US)
  Receive Date: 20210722
  Receipt Date: 20210722
  Transmission Date: 20211014
  Serious: Yes (Hospitalization)
  Sender: FDA-Public Use
  Company Number: US-ELI_LILLY_AND_COMPANY-US202107005738

PATIENT
  Age: 39 Year
  Sex: Female

DRUGS (2)
  1. RETEVMO [Suspect]
     Active Substance: SELPERCATINIB
     Indication: MEDULLARY THYROID CANCER
     Dosage: 120 MG, BID
     Route: 065
     Dates: start: 20210603
  2. RETEVMO [Suspect]
     Active Substance: SELPERCATINIB
     Indication: METASTASES TO LYMPH NODES

REACTIONS (3)
  - Pleural effusion [Not Recovered/Not Resolved]
  - Acute left ventricular failure [Not Recovered/Not Resolved]
  - Atrial fibrillation [Not Recovered/Not Resolved]

NARRATIVE: CASE EVENT DATE: 20210709
